FAERS Safety Report 24085380 (Version 1)
Quarter: 2024Q3

REPORT INFORMATION
  Report Type: Spontaneous
  Country: GB (occurrence: GB)
  Receive Date: 20240712
  Receipt Date: 20240712
  Transmission Date: 20241016
  Serious: Yes (Other)
  Sender: PHARMAESSENTIA
  Company Number: GB-PHARMAESSENTIA CORPORATION-GB-2024-PEC-004126

PATIENT
  Sex: Female

DRUGS (1)
  1. BESREMI [Suspect]
     Active Substance: ROPEGINTERFERON ALFA-2B-NJFT
     Indication: Essential thrombocythaemia
     Dosage: 90 MCG, Q2W
     Route: 065
     Dates: start: 202402

REACTIONS (1)
  - Chest discomfort [Recovering/Resolving]
